FAERS Safety Report 23986105 (Version 2)
Quarter: 2024Q3

REPORT INFORMATION
  Report Type: Spontaneous
  Country: US (occurrence: US)
  Receive Date: 20240618
  Receipt Date: 20240712
  Transmission Date: 20241016
  Serious: Yes (Other)
  Sender: ORGANON
  Company Number: US-ORGANON-O2406USA001413

PATIENT
  Sex: Female

DRUGS (1)
  1. NEXPLANON [Suspect]
     Active Substance: ETONOGESTREL
     Indication: Contraception
     Dosage: 1 IMPLANT
     Route: 059
     Dates: start: 20230228

REACTIONS (4)
  - Device dislocation [Not Recovered/Not Resolved]
  - Implant site infection [Recovered/Resolved]
  - Complication associated with device [Not Recovered/Not Resolved]
  - Product dose omission issue [Unknown]

NARRATIVE: CASE EVENT DATE: 20230101
